FAERS Safety Report 21194444 (Version 1)
Quarter: 2022Q3

REPORT INFORMATION
  Report Type: Spontaneous
  Country: US (occurrence: None)
  Receive Date: 20220809
  Receipt Date: 20220809
  Transmission Date: 20221027
  Serious: Yes (Disabling)
  Sender: FDA-Public Use
  Company Number: None

PATIENT
  Age: 37 Year
  Sex: Female
  Weight: 63 kg

DRUGS (1)
  1. ENHERTU [Suspect]
     Active Substance: FAM-TRASTUZUMAB DERUXTECAN-NXKI
     Indication: Metastases to breast
     Dosage: OTHER FREQUENCY : EVERY 3 WEEKS;?
     Route: 041
     Dates: start: 20220719

REACTIONS (3)
  - Cough [None]
  - Dyspnoea [None]
  - Interstitial lung disease [None]

NARRATIVE: CASE EVENT DATE: 20220730
